FAERS Safety Report 10159200 (Version 1)
Quarter: 2014Q2

REPORT INFORMATION
  Report Type: Spontaneous
  Country: US (occurrence: None)
  Receive Date: 20140507
  Receipt Date: 20140507
  Transmission Date: 20141212
  Serious: Yes (Hospitalization)
  Sender: FDA-Public Use
  Company Number: None

PATIENT
  Age: 5 Year
  Sex: Male
  Weight: 13 kg

DRUGS (3)
  1. CYCLOPHOSPHAMIDE [Suspect]
  2. CYTARABINE [Suspect]
  3. METHOTREXATE [Suspect]

REACTIONS (9)
  - Septic shock [None]
  - Pneumonia bacterial [None]
  - Pneumonia fungal [None]
  - Bacteraemia [None]
  - Urinary tract infection [None]
  - Abdominal pain [None]
  - Haematochezia [None]
  - Culture positive [None]
  - Rhinovirus infection [None]
